FAERS Safety Report 10215386 (Version 2)
Quarter: 2014Q2

REPORT INFORMATION
  Report Type: Spontaneous
  Country: US (occurrence: US)
  Receive Date: 20140604
  Receipt Date: 20140616
  Transmission Date: 20141212
  Serious: Yes (Death)
  Sender: FDA-Public Use
  Company Number: US-MERCK-1405USA014570

PATIENT
  Age: 16 Year
  Sex: Male

DRUGS (2)
  1. CANCIDAS [Suspect]
     Indication: ANTIFUNGAL PROPHYLAXIS
     Dosage: DAILY
  2. LIP-AMPHOTERICIN [Suspect]
     Indication: ANTIFUNGAL PROPHYLAXIS
     Dosage: TWICE WEEKLY

REACTIONS (1)
  - Drug ineffective [Fatal]
